FAERS Safety Report 10274392 (Version 3)
Quarter: 2014Q3

REPORT INFORMATION
  Report Type: Spontaneous
  Country: US (occurrence: US)
  Receive Date: 20140702
  Receipt Date: 20140917
  Transmission Date: 20150326
  Serious: Yes (Hospitalization, Other)
  Sender: FDA-Public Use
  Company Number: US-TEVA-491755USA

PATIENT
  Age: 63 Year
  Sex: Female

DRUGS (1)
  1. VENLAFAXINE [Suspect]
     Active Substance: VENLAFAXINE HYDROCHLORIDE
     Dosage: 150 MILLIGRAM DAILY;
     Dates: start: 20140424, end: 201405

REACTIONS (9)
  - Tremor [Unknown]
  - Tachycardia [Unknown]
  - Constipation [Unknown]
  - Nausea [Unknown]
  - Electrocardiogram QT prolonged [Recovered/Resolved]
  - Cardiac disorder [Unknown]
  - Heart rate increased [Unknown]
  - Drug withdrawal syndrome [Unknown]
  - Medication error [Unknown]

NARRATIVE: CASE EVENT DATE: 2014
